FAERS Safety Report 16837573 (Version 2)
Quarter: 2019Q4

REPORT INFORMATION
  Report Type: Report from Study
  Country: US (occurrence: US)
  Receive Date: 20190923
  Receipt Date: 20191108
  Transmission Date: 20200122
  Serious: Yes (Other)
  Sender: FDA-Public Use
  Company Number: US-BIOGEN-2019BI00786315

PATIENT
  Sex: Female

DRUGS (1)
  1. TYSABRI [Suspect]
     Active Substance: NATALIZUMAB
     Indication: MULTIPLE SCLEROSIS
     Route: 065
     Dates: start: 20160531

REACTIONS (4)
  - Urinary tract infection [Unknown]
  - Pneumonia [Recovered/Resolved]
  - Pneumonia aspiration [Unknown]
  - Oesophageal stenosis [Recovered/Resolved]
